FAERS Safety Report 7853099-4 (Version None)
Quarter: 2011Q4

REPORT INFORMATION
  Report Type: 
  Country: None (occurrence: None)
  Receive Date: 20111026
  Receipt Date: 20111017
  Transmission Date: 20120403
  Serious: Yes (Hospitalization)
  Sender: FDA-Public Use
  Company Number: US-JNJFOC-20111009725

PATIENT
  Sex: Female
  Weight: 111.59 kg

DRUGS (4)
  1. DILAUDID [Suspect]
     Indication: PAIN
     Dosage: EVERY 4-6 HOURS AS NECESSARY
     Route: 048
     Dates: end: 20080101
  2. SOMA [Concomitant]
     Indication: PRODUCT USED FOR UNKNOWN INDICATION
     Dosage: EVERY 4-6 HOURS AS NECESSARY
     Route: 065
  3. DURAGESIC-100 [Suspect]
     Indication: BACK PAIN
     Route: 062
     Dates: start: 20030101
  4. DURAGESIC-100 [Suspect]
     Indication: NECK PAIN
     Route: 062
     Dates: start: 20030101

REACTIONS (4)
  - DRUG ADMINISTERED AT INAPPROPRIATE SITE [None]
  - WRONG TECHNIQUE IN DRUG USAGE PROCESS [None]
  - GASTROINTESTINAL OBSTRUCTION [None]
  - PRODUCT ADHESION ISSUE [None]
